FAERS Safety Report 9719931 (Version 1)
Quarter: 2013Q4

REPORT INFORMATION
  Report Type: Spontaneous
  Country: US (occurrence: US)
  Receive Date: 20131128
  Receipt Date: 20131128
  Transmission Date: 20140711
  Serious: No
  Sender: FDA-Public Use
  Company Number: US-009507513-1311USA004064

PATIENT
  Age: 93 Year
  Sex: Female

DRUGS (7)
  1. ZOCOR [Suspect]
     Indication: BLOOD CHOLESTEROL INCREASED
     Dosage: 40 MG, ONCE IN THE EVENING
     Route: 048
     Dates: start: 1991
  2. XALATAN [Concomitant]
  3. VASERETIC [Concomitant]
  4. ACTOS [Concomitant]
  5. CHIROCAINE [Concomitant]
  6. COUMADIN [Concomitant]
  7. COSOPT [Concomitant]

REACTIONS (3)
  - Somnolence [Not Recovered/Not Resolved]
  - Somnolence [Not Recovered/Not Resolved]
  - Asthenia [Not Recovered/Not Resolved]
